FAERS Safety Report 23945925 (Version 1)
Quarter: 2024Q2

REPORT INFORMATION
  Report Type: Spontaneous
  Country: FR (occurrence: None)
  Receive Date: 20240606
  Receipt Date: 20240606
  Transmission Date: 20240716
  Serious: Yes (Hospitalization)
  Sender: FDA-Public Use
  Company Number: FR-MLMSERVICE-20240527-PI077896-00029-1

PATIENT
  Age: 18 Year
  Sex: Female

DRUGS (2)
  1. ACETAMINOPHEN [Suspect]
     Active Substance: ACETAMINOPHEN
     Indication: Hyperthermia
     Dosage: ABNORMAL CONSUMPTION OF PARACETAMOL WITHOUT SPECIFYING THE DURATION OF ADMINISTRATION OR THE DOSA...
  2. ACETAMINOPHEN [Suspect]
     Active Substance: ACETAMINOPHEN
     Indication: Hyperthermia
     Dosage: AT A THERAPEUTIC DOSE WITHIN THE CONTEXT OF HER HYPERTHERMIA DURING HOSPITALIZATION IN THE FIRST ...

REACTIONS (2)
  - Metabolic acidosis [Recovered/Resolved]
  - Toxicity to various agents [Recovered/Resolved]
